FAERS Safety Report 4870939-1 (Version None)
Quarter: 2005Q4

REPORT INFORMATION
  Report Type: 
  Country: None (occurrence: None)
  Receive Date: 20051228
  Receipt Date: 20051214
  Transmission Date: 20060501
  Serious: Yes (Hospitalization)
  Sender: FDA-Public Use
  Company Number: 2005-136023-NL

PATIENT
  Age: 34 Year
  Sex: Female

DRUGS (6)
  1. ROCURONIUM BROMIDE [Suspect]
  2. DI-ANTALVIC [Suspect]
     Dates: end: 20051016
  3. PROPOFOL [Suspect]
  4. SUFENTANIL CITRATE [Suspect]
  5. PARACETAMOL [Suspect]
  6. SEVOFLURANE [Suspect]
     Dosage: RESPIRATORY (INHALATION)
     Route: 055

REACTIONS (3)
  - ALANINE AMINOTRANSFERASE INCREASED [None]
  - ASPARTATE AMINOTRANSFERASE INCREASED [None]
  - BLOOD ALKALINE PHOSPHATASE INCREASED [None]
